FAERS Safety Report 11857474 (Version 1)
Quarter: 2015Q4

REPORT INFORMATION
  Report Type: Spontaneous
  Country: US (occurrence: US)
  Receive Date: 20151221
  Receipt Date: 20151221
  Transmission Date: 20160305
  Serious: No
  Sender: FDA-Public Use
  Company Number: US-FERRINGPH-2015FE02815

PATIENT

DRUGS (1)
  1. LYSTEDA [Suspect]
     Active Substance: TRANEXAMIC ACID
     Indication: HEREDITARY HAEMORRHAGIC TELANGIECTASIA
     Dosage: 4 TABLETS, DAILY

REACTIONS (1)
  - Off label use [Unknown]
